FAERS Safety Report 8644627 (Version 3)
Quarter: 2014Q1

REPORT INFORMATION
  Report Type: Spontaneous
  Country: US (occurrence: US)
  Receive Date: 20120630
  Receipt Date: 20140107
  Transmission Date: 20141002
  Serious: Yes (Other)
  Sender: FDA-Public Use
  Company Number: US-ASTRAZENECA-2012SE34546

PATIENT
  Age: 52 Year
  Sex: Female

DRUGS (8)
  1. NEXIUM [Suspect]
     Indication: GASTROOESOPHAGEAL REFLUX DISEASE
     Dosage: TWICE DAILY
     Route: 048
     Dates: start: 2001
  2. NEXIUM [Suspect]
     Indication: GASTROOESOPHAGEAL REFLUX DISEASE
     Route: 048
     Dates: start: 20040419
  3. PREVACID [Concomitant]
     Dosage: ONCE DAILY FOR FIVE MONTHS
     Dates: start: 1999
  4. LISINOPRIL [Concomitant]
     Dosage: DAILY
  5. TRAVATAN [Concomitant]
     Dosage: DAILY
  6. NORCO [Concomitant]
     Dosage: 10/325 2-3 PILLS BY MOUTH DAILY AS NEEDED
  7. PREDNISONE [Concomitant]
     Dosage: 20 MG 10,2 PO QD THREEE TIMES DAYS, THEN 1 QD TIL GONE
  8. FLORICET [Concomitant]
     Dosage: 325-50-40 MG

REACTIONS (10)
  - Benign bone neoplasm [Unknown]
  - Osteoporosis [Unknown]
  - Multiple fractures [Unknown]
  - Arthritis [Unknown]
  - Exostosis [Unknown]
  - Cyst [Unknown]
  - Bone disorder [Unknown]
  - Rheumatoid arthritis [Unknown]
  - Liver disorder [Unknown]
  - Depression [Unknown]
